FAERS Safety Report 5755633-7 (Version None)
Quarter: 2008Q2

REPORT INFORMATION
  Report Type: 
  Country: None (occurrence: None)
  Receive Date: 20080602
  Receipt Date: 20080521
  Transmission Date: 20081010
  Serious: Yes (Hospitalization, Other)
  Sender: FDA-Public Use
  Company Number: JP-ROCHE-558796

PATIENT
  Sex: Male
  Weight: 62 kg

DRUGS (4)
  1. PEGASYS [Suspect]
     Route: 058
     Dates: start: 20070831, end: 20080111
  2. CONIEL [Concomitant]
     Route: 048
     Dates: start: 20000501
  3. URSO 250 [Concomitant]
     Route: 048
     Dates: start: 20000501
  4. SERENAL [Concomitant]
     Route: 048
     Dates: start: 20000501

REACTIONS (2)
  - INTERSTITIAL LUNG DISEASE [None]
  - NEPHROTIC SYNDROME [None]
